FAERS Safety Report 5136957-3 (Version None)
Quarter: 2006Q4

REPORT INFORMATION
  Report Type: 
  Country: None (occurrence: None)
  Receive Date: 20061024
  Receipt Date: 20061011
  Transmission Date: 20070319
  Serious: Yes (Other)
  Sender: FDA-Public Use
  Company Number: 2006126331

PATIENT
  Age: 47 Year
  Sex: Female
  Weight: 49.8957 kg

DRUGS (2)
  1. LYRICA [Suspect]
     Indication: NEURALGIA
     Dosage: 150 MG (75 MG, 2 IN 1 D), ORAL
     Route: 048
     Dates: start: 20060101
  2. ALL OTHER THERAPEUTIC PRODUCTS [Concomitant]

REACTIONS (4)
  - DISTURBANCE IN ATTENTION [None]
  - FEAR [None]
  - IMPAIRED WORK ABILITY [None]
  - SPINAL NERVE STIMULATOR IMPLANTATION [None]
